FAERS Safety Report 17474993 (Version 1)
Quarter: 2020Q1

REPORT INFORMATION
  Report Type: Report from Study
  Country: FR (occurrence: FR)
  Receive Date: 20200228
  Receipt Date: 20200228
  Transmission Date: 20200409
  Serious: Yes (Death, Hospitalization, Other)
  Sender: FDA-Public Use
  Company Number: FR-JNJFOC-20190728766

PATIENT
  Age: 57 Year
  Sex: Male
  Weight: 70 kg

DRUGS (15)
  1. STELARA [Suspect]
     Active Substance: USTEKINUMAB
     Indication: PSORIASIS
     Route: 058
     Dates: start: 201902, end: 201903
  2. DEXERYL [Concomitant]
     Route: 005
     Dates: start: 20180425, end: 20190606
  3. LAROXYL [Concomitant]
     Active Substance: AMITRIPTYLINE HYDROCHLORIDE
     Indication: DEPRESSION
     Dosage: 20 GOULTES
     Route: 048
     Dates: start: 20180726, end: 20190606
  4. GUTRON [Concomitant]
     Active Substance: MIDODRINE
     Indication: HYPERTENSION
     Route: 048
     Dates: start: 201903, end: 20190606
  5. DAIVOBET [Concomitant]
     Active Substance: BETAMETHASONE DIPROPIONATE\CALCIPOTRIENE
     Indication: PSORIASIS
     Dates: start: 20180524, end: 20190606
  6. DUPHALAC [Concomitant]
     Active Substance: LACTULOSE
     Indication: HEPATIC ENCEPHALOPATHY
     Route: 048
     Dates: start: 201904, end: 20190606
  7. TRINEURIN                          /00499701/ [Concomitant]
     Indication: VITAMIN B COMPLEX DEFICIENCY
     Route: 048
     Dates: end: 20190606
  8. PANTOPRAZOLE [Concomitant]
     Active Substance: PANTOPRAZOLE
     Indication: OESOPHAGITIS
     Route: 048
     Dates: end: 20190606
  9. PANTOPRAZOLE [Concomitant]
     Active Substance: PANTOPRAZOLE
     Indication: OESOPHAGITIS
     Route: 048
  10. MYCOSTER                           /00619301/ [Concomitant]
     Active Substance: CICLOPIROX\CICLOPIROX OLAMINE
     Indication: PSORIASIS
     Route: 061
     Dates: start: 201901, end: 20190606
  11. STELARA [Suspect]
     Active Substance: USTEKINUMAB
     Route: 058
     Dates: start: 201903
  12. VOGALENE [Concomitant]
     Active Substance: METOPIMAZINE
     Dates: start: 201902, end: 20190412
  13. PRIMPERAN [Concomitant]
     Active Substance: METOCLOPRAMIDE HYDROCHLORIDE
     Dates: start: 201902, end: 20190412
  14. KALEORID [Concomitant]
     Active Substance: POTASSIUM CHLORIDE
     Indication: HYPOKALAEMIA
     Route: 048
     Dates: start: 201904, end: 20190606
  15. SPIRONOLACTONE. [Concomitant]
     Active Substance: SPIRONOLACTONE
     Dates: start: 201904, end: 20190524

REACTIONS (7)
  - Cerebral haemorrhage [Fatal]
  - Disseminated intravascular coagulation [Unknown]
  - Hepatic failure [Unknown]
  - Anaemia [Unknown]
  - Head injury [Unknown]
  - Bacterial sepsis [Unknown]
  - Subarachnoid haemorrhage [Unknown]

NARRATIVE: CASE EVENT DATE: 2019
